FAERS Safety Report 14959641 (Version 2)
Quarter: 2023Q2

REPORT INFORMATION
  Report Type: Spontaneous
  Country: US (occurrence: US)
  Receive Date: 20180531
  Receipt Date: 20230526
  Transmission Date: 20230722
  Serious: No
  Sender: FDA-Public Use
  Company Number: US-PERRIGO-18US000455

PATIENT
  Sex: Male
  Weight: 55.782 kg

DRUGS (7)
  1. MINOXIDIL [Suspect]
     Active Substance: MINOXIDIL
     Indication: Alopecia
     Dosage: 2 TO 3 CAPFULS, BID
     Route: 061
     Dates: start: 2016, end: 2018
  2. MINOXIDIL [Suspect]
     Active Substance: MINOXIDIL
     Dosage: 3/4 CAPFUL, BID
     Route: 061
     Dates: start: 2018
  3. MINOXIDIL [Suspect]
     Active Substance: MINOXIDIL
     Dosage: 1/2 CAPFUL OR LESS, BID
     Route: 061
     Dates: start: 2015, end: 202207
  4. MINOXIDIL [Suspect]
     Active Substance: MINOXIDIL
     Dosage: 3/4 CAPFUL, BID
     Route: 061
     Dates: start: 202207
  5. VITAMINS                           /90003601/ [Concomitant]
     Indication: Vitamin supplementation
     Dosage: UNK
     Route: 065
  6. DIETARY SUPPLEMENT [Concomitant]
     Active Substance: DIETARY SUPPLEMENT
     Indication: Supplementation therapy
     Dosage: UNK
     Route: 065
  7. ARMOUR THYROID [Concomitant]
     Active Substance: THYROID, PORCINE
     Indication: Thyroid disorder
     Dosage: UNK
     Route: 065
     Dates: start: 2021

REACTIONS (6)
  - Ear discomfort [Unknown]
  - Drug ineffective [Unknown]
  - Headache [Not Recovered/Not Resolved]
  - Overdose [Unknown]
  - Product administered at inappropriate site [Unknown]
  - Incorrect dose administered [Unknown]

NARRATIVE: CASE EVENT DATE: 20160101
